FAERS Safety Report 11794010 (Version 1)
Quarter: 2015Q4

REPORT INFORMATION
  Report Type: Spontaneous
  Country: FR (occurrence: FR)
  Receive Date: 20151202
  Receipt Date: 20151202
  Transmission Date: 20160305
  Serious: Yes (Hospitalization)
  Sender: FDA-Public Use
  Company Number: FR-ACTELION-A-CH2015-127986

PATIENT
  Age: 68 Year
  Sex: Male

DRUGS (12)
  1. GLUCOPHAGE [Concomitant]
     Active Substance: METFORMIN HYDROCHLORIDE
     Indication: TYPE 2 DIABETES MELLITUS
     Route: 048
  2. TRIATEC [Concomitant]
     Active Substance: RAMIPRIL
  3. INEXIUM [Concomitant]
     Active Substance: ESOMEPRAZOLE
  4. TRACLEER [Suspect]
     Active Substance: BOSENTAN
     Dosage: 125 MG, BID
     Route: 048
     Dates: start: 20130801
  5. PROCORALAN [Concomitant]
     Active Substance: IVABRADINE
  6. DIAMICRON [Concomitant]
     Active Substance: GLICLAZIDE
  7. ADCIRCA [Concomitant]
     Active Substance: TADALAFIL
     Dosage: UNK
     Dates: start: 20130707
  8. TAHOR [Concomitant]
     Active Substance: ATORVASTATIN CALCIUM
  9. PREVISCAN [Concomitant]
     Active Substance: FLUINDIONE
  10. TRACLEER [Suspect]
     Active Substance: BOSENTAN
     Indication: PULMONARY ARTERIAL HYPERTENSION
     Dosage: 62.5 MG, BID
     Route: 048
     Dates: start: 20130707, end: 20150731
  11. TRACLEER [Suspect]
     Active Substance: BOSENTAN
     Dosage: 62.5 MG, BID
     Route: 048
  12. XANAX [Concomitant]
     Active Substance: ALPRAZOLAM

REACTIONS (8)
  - Weight decreased [Recovered/Resolved]
  - Bladder spasm [Recovered/Resolved]
  - Decreased appetite [Recovered/Resolved]
  - Syncope [Recovered/Resolved]
  - Malnutrition [Recovered/Resolved]
  - Hypotension [Unknown]
  - Drug intolerance [Recovered/Resolved]
  - Diarrhoea [Recovered/Resolved]

NARRATIVE: CASE EVENT DATE: 201308
